FAERS Safety Report 25222764 (Version 3)
Quarter: 2025Q2

REPORT INFORMATION
  Report Type: Spontaneous
  Country: JP (occurrence: JP)
  Receive Date: 20250422
  Receipt Date: 20250530
  Transmission Date: 20250716
  Serious: Yes (Hospitalization)
  Sender: JAZZ
  Company Number: JP-JAZZ PHARMACEUTICALS-2025-JP-010047

PATIENT
  Age: 73 Year
  Sex: Male

DRUGS (1)
  1. VYXEOS [Suspect]
     Active Substance: CYTARABINE\DAUNORUBICIN
     Indication: Acute myeloid leukaemia
     Route: 042
     Dates: start: 20250219, end: 20250221

REACTIONS (2)
  - Pulmonary alveolar haemorrhage [Recovering/Resolving]
  - Myelosuppression [Recovered/Resolved]

NARRATIVE: CASE EVENT DATE: 20250403
